FAERS Safety Report 6616856-8 (Version None)
Quarter: 2010Q1

REPORT INFORMATION
  Report Type: 
  Country: None (occurrence: None)
  Receive Date: 20100301
  Receipt Date: 20100222
  Transmission Date: 20100710
  Serious: Yes (Hospitalization)
  Sender: FDA-Public Use
  Company Number: 2009-194500-NL

PATIENT
  Age: 24 Year
  Sex: Female
  Weight: 86.1834 kg

DRUGS (2)
  1. NUVARING [Suspect]
     Indication: CONTRACEPTION
     Dates: start: 20070501, end: 20070901
  2. ALEVE (CAPLET) [Concomitant]

REACTIONS (7)
  - DEEP VEIN THROMBOSIS [None]
  - DRUG INEFFECTIVE [None]
  - HOMANS' SIGN [None]
  - MUSCULOSKELETAL PAIN [None]
  - TENDONITIS [None]
  - THROMBOPHLEBITIS SEPTIC [None]
  - VEIN DISORDER [None]
